FAERS Safety Report 12834474 (Version 4)
Quarter: 2016Q4

REPORT INFORMATION
  Report Type: Spontaneous
  Country: US (occurrence: US)
  Receive Date: 20161010
  Receipt Date: 20161122
  Transmission Date: 20170207
  Serious: Yes (Other)
  Sender: FDA-Public Use
  Company Number: US-PFIZER INC-2016348601

PATIENT
  Age: 79 Year
  Sex: Female
  Weight: 57.17 kg

DRUGS (4)
  1. LETROZOLE. [Concomitant]
     Active Substance: LETROZOLE
     Indication: HORMONE THERAPY
     Dosage: 2.5 MG, 1X/DAY
     Dates: start: 2016
  2. IBRANCE [Suspect]
     Active Substance: PALBOCICLIB
     Indication: BREAST CANCER FEMALE
     Dosage: 100 MG, CYCLIC (ONE CAPSULE DAILY FOR 3 WEEKS THEN 1 WEEK OFF EVERY 28 DAYS)
     Route: 048
     Dates: start: 2016
  3. IBRANCE [Suspect]
     Active Substance: PALBOCICLIB
     Indication: NEOPLASM MALIGNANT
  4. AMLODIPINE [Concomitant]
     Active Substance: AMLODIPINE BESYLATE
     Indication: BLOOD PRESSURE ABNORMAL
     Dosage: 10 MG, 1X/DAY

REACTIONS (1)
  - Thrombosis [Not Recovered/Not Resolved]

NARRATIVE: CASE EVENT DATE: 20160801
